FAERS Safety Report 19718558 (Version 1)
Quarter: 2021Q3

REPORT INFORMATION
  Report Type: Report from Study
  Country: US (occurrence: US)
  Receive Date: 20210818
  Receipt Date: 20210818
  Transmission Date: 20211014
  Serious: Yes (Hospitalization)
  Sender: FDA-Public Use
  Company Number: US-JNJFOC-A-NJ2019-189720

PATIENT
  Age: 74 Year
  Sex: Female
  Weight: 193 kg

DRUGS (24)
  1. TRESIBA [Concomitant]
     Active Substance: INSULIN DEGLUDEC
     Dosage: 200 UNITST?36UNITS IN AM
     Dates: start: 2015
  2. BIOTIN [Concomitant]
     Active Substance: BIOTIN
     Dosage: 1 MG, QD
     Dates: start: 2017
  3. ALPRAZOLAM. [Concomitant]
     Active Substance: ALPRAZOLAM
     Dosage: 0.05 MG, QD
  4. LASIX [Concomitant]
     Active Substance: FUROSEMIDE
     Dosage: 20 MG, QD 1?2 TABS
     Dates: start: 201902
  5. OPSUMIT [Suspect]
     Active Substance: MACITENTAN
     Indication: PULMONARY ARTERIAL HYPERTENSION
     Dosage: 10 MG, QD
     Route: 048
     Dates: start: 20190412
  6. PROBIOTIC [Concomitant]
     Active Substance: PROBIOTICS NOS
     Dosage: 10 BILLION DAILY
  7. TYLENOL [Concomitant]
     Active Substance: ACETAMINOPHEN
     Dosage: 325 MG, PRN
  8. TRAZODONE [Concomitant]
     Active Substance: TRAZODONE HYDROCHLORIDE
     Dosage: 100 MG, BID
  9. SILDENAFIL. [Concomitant]
     Active Substance: SILDENAFIL
     Dosage: 20 MG 3 TABS TID
     Dates: start: 201902
  10. ASMANEX [Concomitant]
     Active Substance: MOMETASONE FUROATE
     Dosage: 200 MG, BID
  11. PRISTIQ EXTENDED?RELEASE [Concomitant]
     Active Substance: DESVENLAFAXINE SUCCINATE
     Dosage: 100 MG, QD
     Dates: start: 201812
  12. TRICOR [Concomitant]
     Active Substance: FENOFIBRATE
     Dosage: 145 MG, QD
  13. LATANOPROST. [Concomitant]
     Active Substance: LATANOPROST
     Dosage: 1 DROP EACH EYE AT BEDTIME
  14. AVAPRO [Concomitant]
     Active Substance: IRBESARTAN
     Dosage: 300 MG, QD
  15. CENTRUM SILVER [Concomitant]
     Active Substance: MINERALS\VITAMINS
     Dosage: UNK MG, QD
  16. NEXIUM [Concomitant]
     Active Substance: ESOMEPRAZOLE MAGNESIUM
     Dosage: 80 MG, BID
  17. ZYRTEC [Concomitant]
     Active Substance: CETIRIZINE HYDROCHLORIDE
     Dosage: 10 MG, QD
  18. VITAMIN D3 [Concomitant]
     Active Substance: CHOLECALCIFEROL
     Dosage: 2000 UNITS, QD
  19. DILTIAZEM. [Concomitant]
     Active Substance: DILTIAZEM
     Dosage: 360 MG, QD
  20. HYDRALAZINE [Concomitant]
     Active Substance: HYDRALAZINE HYDROCHLORIDE
     Dosage: 10 MG, QD
  21. FISH OIL [Concomitant]
     Active Substance: FISH OIL
     Dosage: 1500 MG, BID
  22. VITAMIN B6 [Concomitant]
     Active Substance: PYRIDOXINE HYDROCHLORIDE
     Dosage: 100 MG, TID
  23. HUMALOG [Concomitant]
     Active Substance: INSULIN LISPRO
     Dosage: 100 UNITS?14UNITS BEFORE BEDTIME
     Dates: start: 2015
  24. BITRON [Concomitant]
     Dosage: 325MG/65MG/325MG, QD
     Dates: start: 201902

REACTIONS (6)
  - Dysuria [Not Recovered/Not Resolved]
  - Weight decreased [Recovered/Resolved]
  - Pulmonary oedema [Recovered/Resolved]
  - Weight increased [Not Recovered/Not Resolved]
  - Cardiac failure [Unknown]
  - Glaucoma [Unknown]

NARRATIVE: CASE EVENT DATE: 20190414
